FAERS Safety Report 12542545 (Version 1)
Quarter: 2016Q3

REPORT INFORMATION
  Report Type: Spontaneous
  Country: US (occurrence: US)
  Receive Date: 20160709
  Receipt Date: 20160709
  Transmission Date: 20161109
  Serious: Yes (Other)
  Sender: FDA-Public Use
  Company Number: US-CIPLA-2013US00607

PATIENT

DRUGS (3)
  1. GEMCITABINE [Suspect]
     Active Substance: GEMCITABINE\GEMCITABINE HYDROCHLORIDE
     Indication: PANCREATIC CARCINOMA
     Dosage: 1000 MG/M2, WEEKLY FOR THREE DOSES
  2. GEMCITABINE [Suspect]
     Active Substance: GEMCITABINE\GEMCITABINE HYDROCHLORIDE
     Dosage: 1000 MG/M2,WEEKLY WITH 3 WEEKS OF CHEMOTHERAPY AND1 WEEK OFF
  3. FLUOROURACIL. [Concomitant]
     Active Substance: FLUOROURACIL
     Dosage: 225 MG/M2, QD MONDAY THROUGH FRIDAY
     Route: 065

REACTIONS (7)
  - Gouty arthritis [Recovered/Resolved]
  - Pancreatic carcinoma metastatic [Unknown]
  - Thrombocytopenia [Unknown]
  - Drug intolerance [Unknown]
  - Neutropenia [Recovered/Resolved]
  - Joint swelling [Recovered/Resolved]
  - Lymphadenopathy [Unknown]
